FAERS Safety Report 23159753 (Version 2)
Quarter: 2023Q4

REPORT INFORMATION
  Report Type: Report from Study
  Country: US (occurrence: US)
  Receive Date: 20231108
  Receipt Date: 20231124
  Transmission Date: 20240110
  Serious: No
  Sender: FDA-Public Use
  Company Number: US-002147023-NVSC2023US237287

PATIENT
  Sex: Male

DRUGS (1)
  1. KESIMPTA [Suspect]
     Active Substance: OFATUMUMAB
     Indication: Product used for unknown indication
     Dosage: 20 MG, QW
     Route: 058

REACTIONS (7)
  - Influenza like illness [Unknown]
  - Back pain [Unknown]
  - Pain [Unknown]
  - Testicular disorder [Unknown]
  - Burning sensation [Unknown]
  - Renal pain [Unknown]
  - Influenza [Unknown]
